FAERS Safety Report 5073568-2 (Version None)
Quarter: 2006Q3

REPORT INFORMATION
  Report Type: 
  Country: None (occurrence: None)
  Receive Date: 20060717
  Receipt Date: 20060112
  Transmission Date: 20061208
  Serious: No
  Sender: FDA-Public Use
  Company Number: 2006000123

PATIENT
  Age: 42 Year
  Sex: Female
  Weight: 49.8957 kg

DRUGS (2)
  1. TARCEVA [Suspect]
     Indication: NON-SMALL CELL LUNG CANCER
     Dosage: SEE IMAGE
     Route: 048
     Dates: start: 20051017, end: 20051101
  2. TARCEVA [Suspect]
     Indication: NON-SMALL CELL LUNG CANCER
     Dosage: SEE IMAGE
     Route: 048
     Dates: start: 20051101

REACTIONS (7)
  - ACNE [None]
  - ARTHRALGIA [None]
  - DIARRHOEA [None]
  - DRY SKIN [None]
  - EAR DISCOMFORT [None]
  - RASH PUSTULAR [None]
  - STOMACH DISCOMFORT [None]
